FAERS Safety Report 10216120 (Version 1)
Quarter: 2014Q2

REPORT INFORMATION
  Report Type: Spontaneous
  Country: US (occurrence: None)
  Receive Date: 20140603
  Receipt Date: 20140603
  Transmission Date: 20141212
  Serious: Yes (Life-Threatening, Hospitalization, Disabling)
  Sender: FDA-Public Use
  Company Number: None

PATIENT
  Age: 49 Year
  Sex: Male
  Weight: 83.92 kg

DRUGS (2)
  1. PREGABLIN 75 MG [Suspect]
     Indication: MUSCLE SPASMS
     Dosage: ONE, TWICE DAILY, TAKEN BY MOUTH
     Route: 048
     Dates: start: 20111106, end: 20121206
  2. PREGABLIN 75 MG [Suspect]
     Indication: MYALGIA
     Dosage: ONE, TWICE DAILY, TAKEN BY MOUTH
     Route: 048
     Dates: start: 20111106, end: 20121206

REACTIONS (7)
  - Anxiety [None]
  - Depression [None]
  - Confusional state [None]
  - Erectile dysfunction [None]
  - Convulsion [None]
  - Disturbance in attention [None]
  - Road traffic accident [None]
